APPROVED DRUG PRODUCT: ROPIVACAINE HYDROCHLORIDE
Active Ingredient: ROPIVACAINE HYDROCHLORIDE
Strength: 500MG/100ML (5MG/ML)
Dosage Form/Route: SOLUTION;INJECTION
Application: A206166 | Product #003 | TE Code: AP
Applicant: INFORLIFE SA
Approved: Jun 11, 2018 | RLD: No | RS: No | Type: RX